FAERS Safety Report 5536921-6 (Version None)
Quarter: 2007Q4

REPORT INFORMATION
  Report Type: 
  Country: None (occurrence: None)
  Receive Date: 20071207
  Receipt Date: 20071130
  Transmission Date: 20080405
  Serious: Yes (Other)
  Sender: FDA-Public Use
  Company Number: PHNU2007DE04000

PATIENT
  Sex: Female

DRUGS (2)
  1. ESTRADOT [Suspect]
     Route: 062
  2. L-THYROXINE [Concomitant]

REACTIONS (3)
  - HEPATITIS [None]
  - LIVER DISORDER [None]
  - TRANSAMINASES INCREASED [None]
